FAERS Safety Report 8524204-1 (Version None)
Quarter: 2012Q3

REPORT INFORMATION
  Report Type: 
  Country: None (occurrence: None)
  Receive Date: 20120720
  Receipt Date: 20120711
  Transmission Date: 20120928
  Serious: Yes (Hospitalization, Other)
  Sender: FDA-Public Use
  Company Number: US-ASTRAZENECA-2012SE28040

PATIENT
  Sex: Female

DRUGS (5)
  1. CRESTOR [Suspect]
     Indication: BLOOD CHOLESTEROL
     Dosage: BREAKING A LITTLE PICE OF THE PILL
     Route: 048
     Dates: start: 20110101
  2. CRESTOR [Suspect]
     Route: 048
     Dates: end: 20120426
  3. ZOCOR [Concomitant]
  4. CRESTOR [Suspect]
     Route: 048
  5. STATINS [Concomitant]
     Dates: start: 19920101

REACTIONS (10)
  - DYSGRAPHIA [None]
  - FATIGUE [None]
  - SPEECH DISORDER [None]
  - LIPIDS INCREASED [None]
  - AMNESIA [None]
  - MENTAL STATUS CHANGES [None]
  - CONFUSIONAL STATE [None]
  - CARDIAC DISORDER [None]
  - INTENTIONAL DRUG MISUSE [None]
  - ADVERSE EVENT [None]
